FAERS Safety Report 23127101 (Version 2)
Quarter: 2023Q4

REPORT INFORMATION
  Report Type: Spontaneous
  Country: US (occurrence: US)
  Receive Date: 20231030
  Receipt Date: 20231101
  Transmission Date: 20240110
  Serious: No
  Sender: FDA-Public Use
  Company Number: US-ABBVIE-5473347

PATIENT
  Sex: Female

DRUGS (2)
  1. LATISSE [Suspect]
     Active Substance: BIMATOPROST
     Indication: Product used for unknown indication
     Route: 047
  2. LATISSE [Suspect]
     Active Substance: BIMATOPROST
     Dosage: EVERY OTHER NIGHT
     Route: 047

REACTIONS (2)
  - Eye pruritus [Unknown]
  - Drug ineffective [Unknown]
